FAERS Safety Report 19441869 (Version 1)
Quarter: 2021Q2

REPORT INFORMATION
  Report Type: Report from Study
  Country: BR (occurrence: BR)
  Receive Date: 20210621
  Receipt Date: 20210621
  Transmission Date: 20210717
  Serious: Yes (Other)
  Sender: FDA-Public Use
  Company Number: NVSC2021BR135594

PATIENT
  Age: 62 Year
  Sex: Female

DRUGS (1)
  1. FULVESTRANTO [Suspect]
     Active Substance: FULVESTRANT
     Indication: PRODUCT USED FOR UNKNOWN INDICATION
     Dosage: UNK, EVERY TWO WEEKS
     Route: 065
     Dates: start: 20210608

REACTIONS (10)
  - Bone cancer [Unknown]
  - Lung neoplasm malignant [Unknown]
  - Nail discolouration [Unknown]
  - Drug ineffective [Unknown]
  - Alopecia [Not Recovered/Not Resolved]
  - Bone pain [Unknown]
  - Abdominal pain upper [Unknown]
  - Coccydynia [Unknown]
  - Diarrhoea [Recovering/Resolving]
  - Neoplasm malignant [Unknown]

NARRATIVE: CASE EVENT DATE: 20210608
